FAERS Safety Report 10017814 (Version 1)
Quarter: 2014Q1

REPORT INFORMATION
  Report Type: Spontaneous
  Country: US (occurrence: US)
  Receive Date: 20140318
  Receipt Date: 20140318
  Transmission Date: 20141002
  Serious: Yes (Other)
  Sender: FDA-Public Use
  Company Number: US-ASTELLAS-2014US002503

PATIENT
  Age: 57 Year
  Sex: Female

DRUGS (1)
  1. LEXISCAN [Suspect]
     Indication: CARDIAC STRESS TEST
     Dosage: UNK
     Route: 042
     Dates: start: 201306, end: 201306

REACTIONS (6)
  - Investigation [Unknown]
  - Viral infection [Unknown]
  - Heart rate irregular [Unknown]
  - Oedema peripheral [Unknown]
  - Ventricular extrasystoles [Unknown]
  - Dizziness [Unknown]
